FAERS Safety Report 20744343 (Version 2)
Quarter: 2022Q2

REPORT INFORMATION
  Report Type: Report from Study
  Country: US (occurrence: US)
  Receive Date: 20220425
  Receipt Date: 20220601
  Transmission Date: 20220721
  Serious: Yes (Hospitalization)
  Sender: FDA-Public Use
  Company Number: US-BRISTOL-MYERS SQUIBB COMPANY-2022-021780

PATIENT
  Age: 68 Year
  Sex: Male
  Weight: 60.1 kg

DRUGS (3)
  1. NIVOLUMAB [Suspect]
     Active Substance: NIVOLUMAB
     Indication: Non-small cell lung cancer
     Route: 042
     Dates: start: 20220127, end: 20220407
  2. NIVOLUMAB [Suspect]
     Active Substance: NIVOLUMAB
     Route: 042
  3. SITRAVATINIB [Suspect]
     Active Substance: SITRAVATINIB
     Indication: Non-small cell lung cancer
     Route: 048
     Dates: start: 20220121, end: 20220402

REACTIONS (1)
  - Weight decreased [Recovered/Resolved]

NARRATIVE: CASE EVENT DATE: 20220407
